FAERS Safety Report 6619754-9 (Version None)
Quarter: 2010Q1

REPORT INFORMATION
  Report Type: 
  Country: None (occurrence: None)
  Receive Date: 20100309
  Receipt Date: 20100226
  Transmission Date: 20100710
  Serious: Yes (Other)
  Sender: FDA-Public Use
  Company Number: PHHY2010IT11532

PATIENT
  Age: 32 Year
  Sex: Female

DRUGS (2)
  1. EXJADE [Suspect]
     Indication: THALASSAEMIA
     Dosage: UNK
  2. EXJADE [Suspect]
     Indication: IRON OVERLOAD

REACTIONS (1)
  - NEPHROGENIC DIABETES INSIPIDUS [None]
